FAERS Safety Report 5754362-3 (Version None)
Quarter: 2008Q2

REPORT INFORMATION
  Report Type: 
  Country: None (occurrence: None)
  Receive Date: 20080530
  Receipt Date: 20080520
  Transmission Date: 20081010
  Serious: Yes (Hospitalization, Other)
  Sender: FDA-Public Use
  Company Number: US-PFIZER INC-2008010951

PATIENT
  Sex: Female
  Weight: 48.5 kg

DRUGS (2)
  1. DILANTIN [Suspect]
     Indication: CONVULSION
     Route: 048
  2. DILANTIN [Suspect]

REACTIONS (9)
  - ASTHENIA [None]
  - CONTUSION [None]
  - CONVULSION [None]
  - DIZZINESS [None]
  - DRUG TOXICITY [None]
  - FALL [None]
  - FEELING ABNORMAL [None]
  - HIP FRACTURE [None]
  - MALAISE [None]
